FAERS Safety Report 21017228 (Version 1)
Quarter: 2022Q2

REPORT INFORMATION
  Report Type: Spontaneous
  Country: US (occurrence: None)
  Receive Date: 20220627
  Receipt Date: 20220627
  Transmission Date: 20220721
  Serious: Yes (Other)
  Sender: FDA-Public Use
  Company Number: None

PATIENT
  Age: 83 Year
  Sex: Male
  Weight: 81.65 kg

DRUGS (4)
  1. REPATHA [Suspect]
     Active Substance: EVOLOCUMAB
  2. TAMSULOSIN [Concomitant]
     Active Substance: TAMSULOSIN
  3. SMALL ASPIIRIN  81 MG [Concomitant]
  4. VITAMINS [Concomitant]
     Active Substance: VITAMINS

REACTIONS (3)
  - Peripheral swelling [None]
  - Peripheral swelling [None]
  - Angiopathy [None]

NARRATIVE: CASE EVENT DATE: 20220202
